FAERS Safety Report 8419941 (Version 2)
Quarter: 2012Q4

REPORT INFORMATION
  Report Type: 
  Country: NL (occurrence: NL)
  Receive Date: 20120222
  Receipt Date: 20121220
  Transmission Date: 20130627
  Serious: Yes (Death, Hospitalization, Other)
  Sender: FDA-Public Use
  Company Number: NL-RANBAXY-2012RR-52639

PATIENT
  Age: 74 Year
  Sex: Male

DRUGS (6)
  1. CLARITHROMYCIN [Suspect]
     Indication: HELICOBACTER INFECTION
     Dosage: 250 mg, bid
     Route: 065
  2. HALOPERIDOL [Suspect]
     Indication: DELIRIUM
     Dosage: UNK
     Route: 042
  3. HALOPERIDOL [Suspect]
     Dosage: UNK
  4. METRONIDAZOLE [Concomitant]
     Indication: HELICOBACTER INFECTION
     Dosage: 500 mg, bid
     Route: 065
  5. RANITIDINE [Concomitant]
     Indication: HELICOBACTER INFECTION
     Dosage: 400 mg, bid
     Route: 065
  6. PRAVASTATIN [Concomitant]
     Indication: PRODUCT USED FOR UNKNOWN INDICATION
     Dosage: UNK
     Route: 065

REACTIONS (2)
  - Delirium [Recovered/Resolved]
  - Extrapyramidal disorder [Unknown]
